FAERS Safety Report 5573247-9 (Version None)
Quarter: 2007Q4

REPORT INFORMATION
  Report Type: 
  Country: None (occurrence: None)
  Receive Date: 20071220
  Receipt Date: 20071206
  Transmission Date: 20080405
  Serious: Yes (Death)
  Sender: FDA-Public Use
  Company Number: 2007002405

PATIENT
  Age: 62 Year
  Sex: Male

DRUGS (4)
  1. ERLOTINIB (ERLOTINIB HCL) (TABLET) (ERLOTINIB HCL) [Suspect]
     Indication: NON-SMALL CELL LUNG CANCER
     Dosage: (150 MG, QD), ORAL
     Route: 048
     Dates: start: 20070307, end: 20070321
  2. DIHYDROCODEINE TARTRATE [Concomitant]
  3. DOXOFYLLINE (DOXOFYLLINE) [Concomitant]
  4. MONTELUKAST SODIUM [Concomitant]

REACTIONS (1)
  - PNEUMOTHORAX [None]
